FAERS Safety Report 5960994-X (Version None)
Quarter: 2008Q4

REPORT INFORMATION
  Report Type: 
  Country: None (occurrence: None)
  Receive Date: 20081121
  Receipt Date: 20081111
  Transmission Date: 20090506
  Serious: Yes (Death)
  Sender: FDA-Public Use
  Company Number: US-BAXTER-2008BH012293

PATIENT
  Sex: Female

DRUGS (3)
  1. ENDOXAN BAXTER [Suspect]
     Indication: BREAST CANCER
     Dosage: DOSE UNIT:UNKNOWN
     Route: 065
     Dates: start: 20080901, end: 20080901
  2. TAXOTERE [Suspect]
     Indication: BREAST CANCER
     Dosage: DOSE UNIT:UNKNOWN
     Route: 065
     Dates: start: 20080901, end: 20080901
  3. ADRIAMYCIN PFS [Suspect]
     Indication: BREAST CANCER
     Dosage: DOSE UNIT:UNKNOWN
     Route: 065
     Dates: start: 20080901, end: 20080901

REACTIONS (2)
  - INTESTINAL PERFORATION [None]
  - SEPSIS [None]
